FAERS Safety Report 6243726-X (Version None)
Quarter: 2009Q2

REPORT INFORMATION
  Report Type: 
  Country: None (occurrence: None)
  Receive Date: 20090624
  Receipt Date: 20090623
  Transmission Date: 20091009
  Serious: Yes (Hospitalization)
  Sender: FDA-Public Use
  Company Number: IT-WYE-G03906509

PATIENT
  Sex: Male
  Weight: 80 kg

DRUGS (1)
  1. TORISEL [Suspect]
     Indication: RENAL CANCER
     Dosage: 25 MG
     Route: 042
     Dates: start: 20090506, end: 20090528

REACTIONS (1)
  - GASTRITIS EROSIVE [None]
